FAERS Safety Report 10038111 (Version 1)
Quarter: 2014Q1

REPORT INFORMATION
  Report Type: Spontaneous
  Country: US (occurrence: None)
  Receive Date: 20140306
  Receipt Date: 20140306
  Transmission Date: 20141002
  Serious: Yes (Other)
  Sender: FDA-Public Use
  Company Number: 163-21880-13105002

PATIENT
  Age: 63 Year
  Sex: Male
  Weight: 96.6 kg

DRUGS (18)
  1. REVLIMID (LENALIDOMIDE) (25 MILLIGRAM, CAPSULES) [Suspect]
     Indication: PLASMA CELL MYELOMA
     Dosage: 14 IN 21 D
     Route: 048
     Dates: start: 201105
  2. COUMADIN (WARFARIN SODIUM) [Concomitant]
  3. ASPIRIN (ACETYLSALICYLIC ACID) [Concomitant]
  4. OMEGA 3 (FISH OIL) [Concomitant]
  5. NITROGLYCERIN (GLYCERYL TRINITRATE) SPRAY [Concomitant]
  6. DEXAMETHASONE (DEXAMETHASONE) [Concomitant]
  7. LACTULOSE (LACTULOSE) [Concomitant]
  8. TORSEMIDE (TORASEMIDE) [Concomitant]
  9. COLACE (DOCASATE SODIUM) [Concomitant]
  10. AMIODARONE (AMIODARONE) [Concomitant]
  11. MULTIVITAMINS (MULTIVITAMINS) [Concomitant]
  12. ONDANSETRON (ODANSETRON) [Concomitant]
  13. CHOLECALCIFEROL ,VITAMINA D3 (COLECALCIFEROL) [Concomitant]
  14. LAMISIL (TERBINAFINE HYDROCHLORIDE) [Concomitant]
  15. ACYCLOVIR (ACICLOVIR) (ACICLOVIR) [Concomitant]
  16. ZOMETA (ZOLEDRONIC ACID) [Concomitant]
  17. COENZYME Q10 (UBIDECARENONE) (CAPSULES) [Concomitant]
  18. BETAMETHASONE DIPROPIONATE (BETAMETHASONE DIPROPIONATE) (OINTMENT) [Concomitant]

REACTIONS (3)
  - Pulmonary embolism [None]
  - Cardiac failure [None]
  - Plasma cell myeloma [None]
